FAERS Safety Report 6697796-5 (Version None)
Quarter: 2010Q2

REPORT INFORMATION
  Report Type: 
  Country: None (occurrence: None)
  Receive Date: 20100423
  Receipt Date: 20100409
  Transmission Date: 20101027
  Serious: Yes (Other)
  Sender: FDA-Public Use
  Company Number: IDA-00349

PATIENT
  Age: 63 Year
  Sex: Female

DRUGS (3)
  1. PROPRANOLOL [Suspect]
     Dosage: 40 MG DAILY
     Dates: start: 20060201
  2. THALIDOMIDE [Concomitant]
  3. BLOOD TRANSFUSION, AUXILIARY PROD./OLD CODE/ (BLOOD TRANSFUSION, AUXIL [Concomitant]

REACTIONS (3)
  - DRUG EFFECT DECREASED [None]
  - HAEMOGLOBIN DECREASED [None]
  - SINUS BRADYCARDIA [None]
